FAERS Safety Report 16132659 (Version 2)
Quarter: 2019Q2

REPORT INFORMATION
  Report Type: Spontaneous
  Country: US (occurrence: US)
  Receive Date: 20190329
  Receipt Date: 20190408
  Transmission Date: 20190711
  Serious: Yes (Other)
  Sender: FDA-Public Use
  Company Number: US-AMGEN INC.-USASP2019048738

PATIENT
  Age: 43 Year
  Sex: Male

DRUGS (5)
  1. AIMOVIG [Suspect]
     Active Substance: ERENUMAB-AOOE
     Indication: PRODUCT USED FOR UNKNOWN INDICATION
     Dosage: UNK
     Route: 065
  2. COSENTYX [Suspect]
     Active Substance: SECUKINUMAB
     Indication: PRODUCT USED FOR UNKNOWN INDICATION
     Dosage: 300 MILLIGRAM, QMO
     Route: 065
     Dates: start: 201801
  3. FOLIC ACID. [Concomitant]
     Active Substance: FOLIC ACID
     Dosage: UNK
  4. KLONOPIN [Concomitant]
     Active Substance: CLONAZEPAM
     Dosage: UNK
  5. TOPAMAX [Concomitant]
     Active Substance: TOPIRAMATE
     Dosage: UNK

REACTIONS (5)
  - Rash erythematous [Unknown]
  - Psoriatic arthropathy [Unknown]
  - Fatigue [Unknown]
  - Confusional state [Unknown]
  - Rash pruritic [Unknown]

NARRATIVE: CASE EVENT DATE: 201901
